FAERS Safety Report 24844603 (Version 1)
Quarter: 2025Q1

REPORT INFORMATION
  Report Type: Spontaneous
  Country: US (occurrence: US)
  Receive Date: 20250115
  Receipt Date: 20250115
  Transmission Date: 20250409
  Serious: Yes (Hospitalization, Disabling)
  Sender: B BRAUN
  Company Number: US-B.Braun Medical Inc.-2169078

PATIENT
  Age: 63 Year
  Sex: Male

DRUGS (3)
  1. SODIUM CHLORIDE [Suspect]
     Active Substance: SODIUM CHLORIDE
     Indication: Fluid replacement
  2. SODIUM CHLORIDE [Suspect]
     Active Substance: SODIUM CHLORIDE
     Indication: Arteriovenous fistula
  3. SODIUM CHLORIDE [Suspect]
     Active Substance: SODIUM CHLORIDE
     Indication: Haemodialysis

REACTIONS (6)
  - Parkinson^s disease [Unknown]
  - Expired product administered [Unknown]
  - Medication error [Unknown]
  - Haemorrhage [Unknown]
  - Paraesthesia [Unknown]
  - Dyskinesia [Unknown]
